FAERS Safety Report 5093373-0 (Version None)
Quarter: 2006Q3

REPORT INFORMATION
  Report Type: 
  Country: None (occurrence: None)
  Receive Date: 20060828
  Receipt Date: 20060815
  Transmission Date: 20061208
  Serious: Yes (Other)
  Sender: FDA-Public Use
  Company Number: 2006093378

PATIENT
  Age: 81 Year
  Sex: Female
  Weight: 62.5964 kg

DRUGS (4)
  1. LYRICA [Suspect]
     Indication: PAIN
     Dosage: 150 MG (75 MG, 2 IN 1 D), ORAL
     Route: 048
     Dates: start: 20060530, end: 20060719
  2. OXYCONTN (OXYCODONE HYDROCHLORIDE) [Concomitant]
  3. SYNTHROID [Concomitant]
  4. NOVOQUININE (QUININE SULFATE) [Concomitant]

REACTIONS (3)
  - BALANCE DISORDER [None]
  - COORDINATION ABNORMAL [None]
  - DYSARTHRIA [None]
